FAERS Safety Report 13537197 (Version 1)
Quarter: 2017Q2

REPORT INFORMATION
  Report Type: Spontaneous
  Country: JP (occurrence: JP)
  Receive Date: 20170511
  Receipt Date: 20170511
  Transmission Date: 20170830
  Serious: Yes (Hospitalization, Other)
  Sender: FDA-Public Use
  Company Number: JP-GLAXOSMITHKLINE-JP2017JPN067526

PATIENT
  Age: 87 Year
  Sex: Female

DRUGS (1)
  1. VALTREX [Suspect]
     Active Substance: VALACYCLOVIR HYDROCHLORIDE
     Indication: HERPES ZOSTER
     Dosage: 500 MG, TID
     Route: 048

REACTIONS (4)
  - Hypoaesthesia [Recovering/Resolving]
  - Dyslalia [Recovering/Resolving]
  - Toxic encephalopathy [Recovering/Resolving]
  - Renal failure [Recovering/Resolving]
